FAERS Safety Report 6048692-8 (Version None)
Quarter: 2009Q1

REPORT INFORMATION
  Report Type: 
  Country: None (occurrence: None)
  Receive Date: 20090123
  Receipt Date: 20090116
  Transmission Date: 20090719
  Serious: Yes (Hospitalization)
  Sender: FDA-Public Use
  Company Number: US-ELI_LILLY_AND_COMPANY-US200901002943

PATIENT
  Sex: Female

DRUGS (5)
  1. HUMULIN R [Suspect]
     Dosage: UNK, UNK
     Dates: start: 20080901
  2. HUMULIN R [Suspect]
     Dosage: 4 U, UNK
  3. HUMULIN R [Suspect]
     Dosage: 6 U, UNK
  4. HUMULIN R [Suspect]
     Dosage: 8 U, UNK
  5. HUMULIN R [Suspect]
     Dosage: 10 U, UNK

REACTIONS (4)
  - AMNESIA [None]
  - BLOOD GLUCOSE INCREASED [None]
  - BRONCHITIS [None]
  - HEADACHE [None]
